FAERS Safety Report 5337098-2 (Version None)
Quarter: 2007Q2

REPORT INFORMATION
  Report Type: 
  Country: None (occurrence: None)
  Receive Date: 20070529
  Receipt Date: 20070515
  Transmission Date: 20071010
  Serious: Yes (Hospitalization, Other)
  Sender: FDA-Public Use
  Company Number: PH-ASTRAZENECA-2007AP02220

PATIENT
  Age: 6613 Day
  Sex: Male
  Weight: 47 kg

DRUGS (12)
  1. SEROQUEL [Suspect]
     Indication: BIPOLAR DISORDER
     Route: 048
     Dates: start: 20070113
  2. SEROQUEL [Suspect]
     Route: 048
     Dates: start: 20070120
  3. SEROQUEL [Suspect]
     Route: 048
     Dates: start: 20070127
  4. SEROQUEL [Suspect]
     Route: 048
     Dates: start: 20070414
  5. RIVOTRIL [Concomitant]
     Route: 048
     Dates: start: 20070102
  6. BENADRYL [Concomitant]
     Indication: INSOMNIA
     Route: 048
     Dates: start: 20070102
  7. BENADRYL [Concomitant]
     Route: 030
     Dates: start: 20070105, end: 20070105
  8. BENADRYL [Concomitant]
     Route: 030
     Dates: start: 20061117
  9. HALOPERIDOL [Concomitant]
     Indication: AGITATION
     Route: 030
     Dates: start: 20070105, end: 20070105
  10. HALOPERIDOL [Concomitant]
     Route: 048
     Dates: start: 20061113, end: 20061116
  11. PARACETAMOL [Concomitant]
     Indication: HEADACHE
     Route: 048
     Dates: start: 20061117, end: 20061117
  12. AMOXICILLIN [Concomitant]
     Indication: UPPER RESPIRATORY TRACT INFECTION
     Route: 048
     Dates: start: 20070130, end: 20070209

REACTIONS (5)
  - CARDIAC FAILURE CONGESTIVE [None]
  - ELECTROCARDIOGRAM ST SEGMENT ABNORMAL [None]
  - ELECTROCARDIOGRAM T WAVE ABNORMAL [None]
  - MITRAL VALVE INCOMPETENCE [None]
  - MYOCARDITIS POST INFECTION [None]
